FAERS Safety Report 8501451-6 (Version None)
Quarter: 2012Q3

REPORT INFORMATION
  Report Type: 
  Country: None (occurrence: None)
  Receive Date: 20120710
  Receipt Date: 20120704
  Transmission Date: 20120928
  Serious: Yes (Hospitalization)
  Sender: FDA-Public Use
  Company Number: DE-ABBOTT-12P-062-0908342-00

PATIENT
  Sex: Male
  Weight: 98.5 kg

DRUGS (4)
  1. ZEMPLAR [Suspect]
     Indication: MESANGIOPROLIFERATIVE GLOMERULONEPHRITIS
     Dosage: 5MCG ON MONDAY AND FRIDAY AFTER DIALYSIS
     Route: 042
     Dates: start: 20111202, end: 20120123
  2. CEFAZOLIN [Concomitant]
  3. CLINDAMYCIN [Concomitant]
     Route: 048
  4. BUPRENORPHINE [Suspect]
     Indication: BACK PAIN
     Dosage: 52 MCG PER HOUR
     Dates: start: 20111223

REACTIONS (5)
  - HYPERTENSION [None]
  - NAUSEA [None]
  - INTERVERTEBRAL DISCITIS [None]
  - WEIGHT DECREASED [None]
  - VOMITING [None]
